FAERS Safety Report 17094910 (Version 2)
Quarter: 2020Q1

REPORT INFORMATION
  Report Type: Spontaneous
  Country: US (occurrence: US)
  Receive Date: 20191130
  Receipt Date: 20200203
  Transmission Date: 20200409
  Serious: Yes (Hospitalization)
  Sender: FDA-Public Use
  Company Number: US-ABBVIE-19K-163-3176210-00

PATIENT
  Age: 62 Year
  Sex: Male

DRUGS (7)
  1. IMBRUVICA [Suspect]
     Active Substance: IBRUTINIB
     Route: 048
     Dates: start: 20170806
  2. IMBRUVICA [Suspect]
     Active Substance: IBRUTINIB
     Route: 048
     Dates: start: 20191029
  3. IMBRUVICA [Suspect]
     Active Substance: IBRUTINIB
     Route: 048
     Dates: start: 20200117
  4. IMBRUVICA [Suspect]
     Active Substance: IBRUTINIB
     Route: 048
     Dates: start: 20190807, end: 20190920
  5. CARDURA [Concomitant]
     Active Substance: DOXAZOSIN MESYLATE
     Indication: PROSTATOMEGALY
     Dates: start: 1990
  6. IMBRUVICA [Suspect]
     Active Substance: IBRUTINIB
     Indication: WALDENSTROM^S MACROGLOBULINAEMIA
     Route: 048
  7. XANAX [Concomitant]
     Active Substance: ALPRAZOLAM
     Indication: PRODUCT USED FOR UNKNOWN INDICATION

REACTIONS (11)
  - Neutropenia [Recovering/Resolving]
  - Speech disorder [Unknown]
  - Mouth ulceration [Unknown]
  - Diplopia [Unknown]
  - Pyrexia [Recovering/Resolving]
  - Headache [Unknown]
  - Generalised tonic-clonic seizure [Recovering/Resolving]
  - Central nervous system lesion [Recovering/Resolving]
  - Rash pruritic [Recovered/Resolved]
  - Meningitis cryptococcal [Recovered/Resolved]
  - Oral candidiasis [Unknown]

NARRATIVE: CASE EVENT DATE: 201909
